FAERS Safety Report 7321985-X (Version None)
Quarter: 2011Q1

REPORT INFORMATION
  Report Type: 
  Country: None (occurrence: None)
  Receive Date: 20110228
  Receipt Date: 20110217
  Transmission Date: 20110831
  Serious: Yes (Other)
  Sender: FDA-Public Use
  Company Number: AU-BAXTER-2011BH004467

PATIENT
  Age: 57 Year
  Sex: Male

DRUGS (3)
  1. FLUDARA [Suspect]
     Route: 065
  2. FLUDARA [Suspect]
     Indication: WALDENSTROM'S MACROGLOBULINAEMIA
     Route: 065
  3. CYCLOPHOSPHAMIDE [Suspect]
     Indication: WALDENSTROM'S MACROGLOBULINAEMIA
     Route: 065

REACTIONS (1)
  - CHRONIC MYELOMONOCYTIC LEUKAEMIA [None]
